FAERS Safety Report 10785448 (Version 1)
Quarter: 2015Q1

REPORT INFORMATION
  Report Type: Spontaneous
  Country: FR (occurrence: None)
  Receive Date: 20150209
  Receipt Date: 20150209
  Transmission Date: 20150721
  Serious: Yes (Other)
  Sender: FDA-Public Use
  Company Number: FR-20150041

PATIENT
  Age: 72 Year
  Sex: Female

DRUGS (3)
  1. DOTAREM [Suspect]
     Active Substance: GADOTERATE MEGLUMINE
     Indication: NUCLEAR MAGNETIC RESONANCE IMAGING
     Route: 042
     Dates: start: 20150112, end: 20150112
  2. DOTAREM [Suspect]
     Active Substance: GADOTERATE MEGLUMINE
     Indication: RENAL HAEMANGIOMA
     Route: 042
     Dates: start: 20150112, end: 20150112
  3. DOTAREM [Suspect]
     Active Substance: GADOTERATE MEGLUMINE
     Route: 042
     Dates: start: 20150112, end: 20150112

REACTIONS (1)
  - Erythema [None]

NARRATIVE: CASE EVENT DATE: 20150112
